FAERS Safety Report 15854468 (Version 1)
Quarter: 2019Q1

REPORT INFORMATION
  Report Type: Spontaneous
  Country: CA (occurrence: CA)
  Receive Date: 20190122
  Receipt Date: 20190122
  Transmission Date: 20190417
  Serious: Yes (Life-Threatening, Hospitalization)
  Sender: FDA-Public Use
  Company Number: CA-JNJFOC-20190120519

PATIENT
  Age: 49 Year
  Sex: Female
  Weight: 62 kg

DRUGS (6)
  1. INVEGA SUSTENNA [Suspect]
     Active Substance: PALIPERIDONE PALMITATE
     Indication: ANXIETY
     Route: 042
  2. VOLTAREN [Concomitant]
     Active Substance: DICLOFENAC SODIUM
     Indication: PRODUCT USED FOR UNKNOWN INDICATION
     Route: 065
  3. IMOVANE [Concomitant]
     Active Substance: ZOPICLONE
     Indication: PRODUCT USED FOR UNKNOWN INDICATION
     Route: 065
  4. SENOKOT [Concomitant]
     Active Substance: SENNOSIDES
     Indication: PRODUCT USED FOR UNKNOWN INDICATION
     Route: 065
  5. NAPROXEN. [Concomitant]
     Active Substance: NAPROXEN
     Indication: PRODUCT USED FOR UNKNOWN INDICATION
     Route: 065
  6. INVEGA SUSTENNA [Suspect]
     Active Substance: PALIPERIDONE PALMITATE
     Indication: FEAR
     Route: 042

REACTIONS (27)
  - Blood pressure decreased [Unknown]
  - Gastrointestinal disorder [Unknown]
  - Migraine [Unknown]
  - Presbyopia [Unknown]
  - Akathisia [Unknown]
  - Headache [Unknown]
  - Supraventricular tachycardia [Unknown]
  - Back pain [Unknown]
  - Constipation [Unknown]
  - Lacrimation increased [Unknown]
  - Tendonitis [Unknown]
  - Nausea [Unknown]
  - Somnolence [Unknown]
  - Myopia [Unknown]
  - Dyskinesia [Unknown]
  - Weight increased [Unknown]
  - Balance disorder [Unknown]
  - Burning sensation [Unknown]
  - Photosensitivity reaction [Unknown]
  - Hypoaesthesia [Unknown]
  - Nightmare [Unknown]
  - Hyperhidrosis [Unknown]
  - Vomiting [Unknown]
  - Incorrect route of product administration [Unknown]
  - Arthritis [Unknown]
  - Feeling hot [Unknown]
  - Off label use [Unknown]
